FAERS Safety Report 22346587 (Version 1)
Quarter: 2023Q2

REPORT INFORMATION
  Report Type: Other
  Country: DE (occurrence: DE)
  Receive Date: 20230520
  Receipt Date: 20230520
  Transmission Date: 20230722
  Serious: Yes (Other)
  Sender: FDA-Public Use
  Company Number: DE-MACLEODS PHARMACEUTICALS US LTD-MAC2023041361

PATIENT

DRUGS (3)
  1. VALSARTAN [Suspect]
     Active Substance: VALSARTAN
     Indication: Hypertension
     Dosage: 160 MILLIGRAM, QD (1 ST TRIMISTER, 0. - 37.1. GESTATIONAL WEEK)
     Route: 048
     Dates: start: 20210616, end: 20220303
  2. MISOPROSTOL [Concomitant]
     Active Substance: MISOPROSTOL
     Indication: Labour induction
     Dosage: 75 MICROGRAM (3 RD TRIMISTER, 41.3. - 41.3. GESTATIONAL WEEK)
     Route: 048
     Dates: start: 20220402, end: 20220402
  3. METHYLDOPA [Concomitant]
     Active Substance: METHYLDOPA
     Indication: Essential hypertension
     Dosage: 1000 MILLIGRAM, QD 4 SEPARATED DOSES (3 RD TRIMISTER, 37.2. - 41.3. GESTATIONAL WEEK)
     Route: 048
     Dates: start: 20220304, end: 20220402

REACTIONS (2)
  - Oligohydramnios [Recovering/Resolving]
  - Exposure during pregnancy [Unknown]
